FAERS Safety Report 5457763-6 (Version None)
Quarter: 2007Q3

REPORT INFORMATION
  Report Type: 
  Country: None (occurrence: None)
  Receive Date: 20070918
  Receipt Date: 20070313
  Transmission Date: 20080115
  Serious: No
  Sender: FDA-Public Use
  Company Number: US-ASTRAZENECA-2007UW04959

PATIENT

DRUGS (3)
  1. SEROQUEL [Suspect]
     Route: 048
  2. OXYS [Concomitant]
  3. MARIJUANA [Concomitant]
     Route: 055

REACTIONS (2)
  - INSOMNIA [None]
  - INTENTIONAL DRUG MISUSE [None]
